FAERS Safety Report 14178030 (Version 1)
Quarter: 2017Q4

REPORT INFORMATION
  Report Type: Report from Study
  Country: US (occurrence: US)
  Receive Date: 20171110
  Receipt Date: 20171110
  Transmission Date: 20180321
  Serious: Yes (Other)
  Sender: FDA-Public Use
  Company Number: US-ROCHE-2021035

PATIENT

DRUGS (5)
  1. ALTEPLASE. [Suspect]
     Active Substance: ALTEPLASE
     Indication: ISCHAEMIC STROKE
     Route: 042
  2. FIBRINOLYSIN [Suspect]
     Active Substance: FIBRINOLYSIN
     Indication: ISCHAEMIC STROKE
     Route: 065
  3. RIVAROXABAN [Suspect]
     Active Substance: RIVAROXABAN
     Indication: ISCHAEMIC STROKE
     Route: 048
  4. UROKINASE [Suspect]
     Active Substance: UROKINASE
     Indication: ISCHAEMIC STROKE
     Route: 065
  5. STREPTOKINASE [Suspect]
     Active Substance: STREPTOKINASE
     Indication: ISCHAEMIC STROKE
     Route: 065

REACTIONS (3)
  - Gastrointestinal haemorrhage [Unknown]
  - Haemorrhagic transformation stroke [Unknown]
  - Haemoglobin decreased [Unknown]
